FAERS Safety Report 7541805-8 (Version None)
Quarter: 2011Q2

REPORT INFORMATION
  Report Type: 
  Country: None (occurrence: None)
  Receive Date: 20110524
  Receipt Date: 20110317
  Transmission Date: 20111010
  Serious: No
  Sender: FDA-Public Use
  Company Number: 029431

PATIENT
  Sex: Male
  Weight: 73.9 kg

DRUGS (3)
  1. PREDNISONE [Concomitant]
  2. ANALGESICS [Concomitant]
  3. CIMZIA [Suspect]
     Indication: RHEUMATOID ARTHRITIS
     Dosage: 2 SHOTS SUBCUTANEOUS
     Route: 058
     Dates: start: 20101201, end: 20110101

REACTIONS (1)
  - DRUG INEFFECTIVE [None]
